FAERS Safety Report 5648466-3 (Version None)
Quarter: 2008Q1

REPORT INFORMATION
  Report Type: 
  Country: None (occurrence: None)
  Receive Date: 20080304
  Receipt Date: 20080225
  Transmission Date: 20080703
  Serious: Yes (Other)
  Sender: FDA-Public Use
  Company Number: PHEH2006US03583

PATIENT
  Age: 54 Year
  Sex: Female
  Weight: 81.632 kg

DRUGS (4)
  1. ZOMETA [Suspect]
  2. INSULIN [Concomitant]
     Indication: DIABETES MELLITUS
  3. MORPHINE [Concomitant]
  4. AREDIA [Suspect]

REACTIONS (18)
  - ANXIETY [None]
  - DENTAL CARIES [None]
  - ENDODONTIC PROCEDURE [None]
  - IMPAIRED HEALING [None]
  - INJURY [None]
  - INSOMNIA [None]
  - LOOSE TOOTH [None]
  - MASTICATION DISORDER [None]
  - ORAL DISCOMFORT [None]
  - ORAL INTAKE REDUCED [None]
  - OSTEOMYELITIS [None]
  - OSTEONECROSIS [None]
  - PAIN [None]
  - PAIN IN JAW [None]
  - SENSATION OF PRESSURE [None]
  - SENSORY LOSS [None]
  - TOOTH EXTRACTION [None]
  - TOOTH INFECTION [None]
